FAERS Safety Report 8309286-4 (Version None)
Quarter: 2012Q2

REPORT INFORMATION
  Report Type: 
  Country: None (occurrence: None)
  Receive Date: 20120424
  Receipt Date: 20120416
  Transmission Date: 20120825
  Serious: Yes (Other)
  Sender: FDA-Public Use
  Company Number: ES-AMGEN-ESPSP2012024516

PATIENT
  Age: 47 Year
  Sex: Female
  Weight: 70 kg

DRUGS (9)
  1. CALCIUM CARBONATE [Concomitant]
     Indication: RHEUMATOID ARTHRITIS
     Dosage: 1 TABLET/24H
     Route: 048
  2. ACETAMINOPHEN [Concomitant]
     Indication: PAIN
     Dosage: UNK
     Route: 048
  3. IBUPROFEN [Concomitant]
     Indication: PAIN
     Dosage: UNK
     Route: 048
  4. ENBREL [Suspect]
     Indication: RHEUMATOID ARTHRITIS
     Dosage: 50 MG, WEEKLY
     Route: 058
     Dates: start: 20111216
  5. TRYPTIZOL                          /00002202/ [Concomitant]
     Indication: PAIN
     Dosage: UNK
  6. PREDNISONE [Concomitant]
     Dosage: 1 TABLET/24H
     Route: 048
  7. ARAVA [Concomitant]
     Indication: RHEUMATOID ARTHRITIS
     Dosage: 1 TABLET/24H
     Route: 048
  8. TRYPTIZOL                          /00002202/ [Concomitant]
     Indication: DEPRESSION
     Dosage: UNK
     Route: 048
  9. TRAMADOL HCL [Concomitant]
     Indication: PAIN
     Dosage: UNK
     Route: 048

REACTIONS (5)
  - AMNESIA [None]
  - TREMOR [None]
  - URINARY TRACT INFECTION [None]
  - SKIN REACTION [None]
  - VERTIGO [None]
